FAERS Safety Report 22329881 (Version 1)
Quarter: 2023Q2

REPORT INFORMATION
  Report Type: Spontaneous
  Country: US (occurrence: None)
  Receive Date: 20230517
  Receipt Date: 20230517
  Transmission Date: 20230722
  Serious: No
  Sender: FDA-Public Use
  Company Number: US-ROCHE-3082486

PATIENT
  Age: 60 Year
  Sex: Female
  Weight: 112.77 kg

DRUGS (2)
  1. ACTEMRA [Suspect]
     Active Substance: TOCILIZUMAB
     Indication: Rheumatoid arthritis
     Route: 042
     Dates: start: 2016
  2. LOSARTAN [Concomitant]
     Active Substance: LOSARTAN
     Indication: Blood pressure measurement
     Route: 048
     Dates: start: 20220420

REACTIONS (1)
  - Blood pressure decreased [Unknown]

NARRATIVE: CASE EVENT DATE: 20210421
